FAERS Safety Report 22005148 (Version 1)
Quarter: 2023Q1

REPORT INFORMATION
  Report Type: Report from Study
  Country: AU (occurrence: AU)
  Receive Date: 20230217
  Receipt Date: 20230217
  Transmission Date: 20230417
  Serious: Yes (Other)
  Sender: FDA-Public Use
  Company Number: AU-MYLANLABS-2023M1017035

PATIENT
  Age: 30 Year
  Sex: Male

DRUGS (1)
  1. OLANZAPINE [Suspect]
     Active Substance: OLANZAPINE
     Indication: Agitation
     Dosage: UNK UNK, QD, RECEIVED 5-15 MG/DAY
     Route: 048

REACTIONS (3)
  - Urinary retention [Unknown]
  - Constipation [Unknown]
  - Waist circumference increased [Unknown]
